FAERS Safety Report 8183631-5 (Version None)
Quarter: 2012Q1

REPORT INFORMATION
  Report Type: 
  Country: None (occurrence: None)
  Receive Date: 20120130
  Receipt Date: 20111124
  Transmission Date: 20120608
  Serious: Yes (Other)
  Sender: FDA-Public Use
  Company Number: 046517

PATIENT
  Sex: Male
  Weight: 101 kg

DRUGS (4)
  1. LEVETIRACETAM [Suspect]
     Indication: CONVULSION
     Dosage: 1000 MG ORAL, 200 MG ORAL
     Route: 048
     Dates: start: 20110701
  2. LEVETIRACETAM [Suspect]
     Indication: CONVULSION
     Dosage: 1000 MG ORAL, 200 MG ORAL
     Route: 048
     Dates: start: 20100701, end: 20110101
  3. LAMOTRIGINE [Concomitant]
  4. CARBAMAZEPINE [Concomitant]

REACTIONS (6)
  - SUICIDAL IDEATION [None]
  - STRESS [None]
  - DISTURBANCE IN ATTENTION [None]
  - MEMORY IMPAIRMENT [None]
  - FEAR [None]
  - ANXIETY [None]
